FAERS Safety Report 9979081 (Version 1)
Quarter: 2014Q1

REPORT INFORMATION
  Report Type: Report from Study
  Country: US (occurrence: US)
  Receive Date: 20140306
  Receipt Date: 20140306
  Transmission Date: 20141002
  Serious: No
  Sender: FDA-Public Use
  Company Number: US-ABBVIE-13P-163-1169106-00

PATIENT
  Age: 65 Year
  Sex: Female
  Weight: 74.91 kg

DRUGS (15)
  1. HUMIRA [Suspect]
     Indication: CROHN^S DISEASE
     Route: 058
     Dates: start: 20130906, end: 20130906
  2. HUMIRA [Suspect]
     Route: 058
     Dates: start: 20130920, end: 20130920
  3. HUMIRA [Suspect]
     Route: 058
     Dates: start: 20131004
  4. LISINOPRIL [Concomitant]
     Indication: HYPERTENSION
  5. RANITIDIN [Concomitant]
     Indication: GASTROOESOPHAGEAL REFLUX DISEASE
  6. CYMBALTA [Concomitant]
     Indication: DEPRESSION
  7. TRAZODONE [Concomitant]
     Indication: FIBROMYALGIA
  8. SIMVASTATIN [Concomitant]
     Indication: BLOOD CHOLESTEROL INCREASED
  9. PROBIOTIC [Concomitant]
     Indication: PROPHYLAXIS
  10. PROBIOTIC [Concomitant]
     Indication: GASTRIC DISORDER
  11. CALCIUM PLUS D [Concomitant]
     Indication: MINERAL SUPPLEMENTATION
  12. VITAMIN D [Concomitant]
     Indication: VITAMIN SUPPLEMENTATION
  13. ASPIRIN [Concomitant]
     Indication: CARDIOVASCULAR EVENT PROPHYLAXIS
  14. ZINC [Concomitant]
     Indication: PRODUCT USED FOR UNKNOWN INDICATION
  15. BIOTIN [Concomitant]
     Indication: ALOPECIA

REACTIONS (5)
  - Joint stiffness [Not Recovered/Not Resolved]
  - Joint stiffness [Not Recovered/Not Resolved]
  - Musculoskeletal stiffness [Not Recovered/Not Resolved]
  - Headache [Not Recovered/Not Resolved]
  - Nausea [Not Recovered/Not Resolved]
